FAERS Safety Report 22027978 (Version 1)
Quarter: 2023Q1

REPORT INFORMATION
  Report Type: Spontaneous
  Country: US (occurrence: None)
  Receive Date: 20230220
  Receipt Date: 20230220
  Transmission Date: 20230417
  Serious: No
  Sender: FDA-Public Use
  Company Number: None

PATIENT
  Age: 53 Year
  Sex: Female
  Weight: 92.25 kg

DRUGS (9)
  1. XIIDRA [Suspect]
     Active Substance: LIFITEGRAST
     Indication: Dry eye
     Dosage: OTHER QUANTITY : 1 1 USE CONTAINER;?FREQUENCY : TWICE A DAY;?
     Route: 047
     Dates: start: 20230113, end: 20230219
  2. XIFAXAN [Concomitant]
     Active Substance: RIFAXIMIN
  3. URSODIOL [Concomitant]
     Active Substance: URSODIOL
  4. FUROSEMIDE [Concomitant]
     Active Substance: FUROSEMIDE
  5. SPIRONOLACTONE [Concomitant]
     Active Substance: SPIRONOLACTONE
  6. WELLBUTRIN [Concomitant]
     Active Substance: BUPROPION HYDROCHLORIDE
  7. Vitamin A [Concomitant]
  8. VITAMIN D [Concomitant]
     Active Substance: VITAMIN D NOS
  9. MELATONIN [Concomitant]
     Active Substance: MELATONIN

REACTIONS (6)
  - Instillation site irritation [None]
  - Instillation site pruritus [None]
  - Glossodynia [None]
  - Tongue blistering [None]
  - Eye swelling [None]
  - Feeling abnormal [None]

NARRATIVE: CASE EVENT DATE: 20230219
